FAERS Safety Report 13882662 (Version 1)
Quarter: 2017Q3

REPORT INFORMATION
  Report Type: Spontaneous
  Country: JP (occurrence: JP)
  Receive Date: 20170818
  Receipt Date: 20170818
  Transmission Date: 20171127
  Serious: Yes (Life-Threatening, Hospitalization)
  Sender: FDA-Public Use
  Company Number: JP-BAYER-2017-154148

PATIENT
  Age: 20 Year
  Sex: Female

DRUGS (3)
  1. RISPERIDONE. [Suspect]
     Active Substance: RISPERIDONE
     Dosage: 122 MG, ONCE
  2. FLUNITRAZEPAM [Suspect]
     Active Substance: FLUNITRAZEPAM
     Dosage: 50 MG, ONCE
  3. ACETYLSALICYLIC ACID({=100 MG) [Suspect]
     Active Substance: ASPIRIN
     Dosage: 52.8 G, ONCE

REACTIONS (9)
  - Loss of consciousness [None]
  - Blood pressure decreased [None]
  - Coma scale abnormal [None]
  - Intentional overdose [None]
  - Suicide attempt [None]
  - Pulseless electrical activity [None]
  - Respiratory depression [None]
  - Sinus tachycardia [None]
  - Bradycardia [None]
